FAERS Safety Report 8112114-3 (Version None)
Quarter: 2012Q1

REPORT INFORMATION
  Report Type: 
  Country: None (occurrence: None)
  Receive Date: 20120203
  Receipt Date: 20120130
  Transmission Date: 20120608
  Serious: Yes (Death, Other)
  Sender: FDA-Public Use
  Company Number: CN-PFIZER INC-2011243120

PATIENT
  Age: 80 Year
  Sex: Male

DRUGS (1)
  1. SUTENT [Suspect]
     Indication: RENAL CELL CARCINOMA
     Dosage: 37.5 MG, 1X/DAY
     Route: 048

REACTIONS (8)
  - CARDIAC FAILURE [None]
  - GASTRIC HAEMORRHAGE [None]
  - HYPOPROTEINAEMIA [None]
  - ANAEMIA [None]
  - DISEASE PROGRESSION [None]
  - ASCITES [None]
  - DIARRHOEA [None]
  - RENAL CELL CARCINOMA [None]
